FAERS Safety Report 9994791 (Version 1)
Quarter: 2014Q1

REPORT INFORMATION
  Report Type: Spontaneous
  Country: LB (occurrence: LB)
  Receive Date: 20140311
  Receipt Date: 20140311
  Transmission Date: 20141002
  Serious: No
  Sender: FDA-Public Use
  Company Number: LB-JNJFOC-20140300805

PATIENT
  Age: 14 Year
  Sex: Male

DRUGS (1)
  1. DUROGESIC [Suspect]
     Indication: CANCER PAIN
     Route: 062

REACTIONS (3)
  - Overdose [Unknown]
  - Drug prescribing error [Unknown]
  - Drug administration error [Unknown]
